FAERS Safety Report 15114531 (Version 1)
Quarter: 2018Q3

REPORT INFORMATION
  Report Type: Spontaneous
  Country: CN (occurrence: CN)
  Receive Date: 20180706
  Receipt Date: 20180706
  Transmission Date: 20181010
  Serious: Yes (Hospitalization)
  Sender: FDA-Public Use
  Company Number: CN-PFIZER INC-2018268861

PATIENT
  Age: 21 Year
  Sex: Male
  Weight: 72 kg

DRUGS (3)
  1. METHYLPREDNISOLONE. [Suspect]
     Active Substance: METHYLPREDNISOLONE
     Dosage: 24 MG, 1X/DAY
     Route: 048
     Dates: start: 20180521, end: 20180528
  2. METHYLPREDNISOLONE. [Suspect]
     Active Substance: METHYLPREDNISOLONE
     Dosage: UNK
  3. METHYLPREDNISOLONE. [Suspect]
     Active Substance: METHYLPREDNISOLONE
     Indication: NEPHROTIC SYNDROME
     Dosage: 48 MG, 1X/DAY
     Route: 048
     Dates: start: 2018, end: 2018

REACTIONS (4)
  - Disease recurrence [Unknown]
  - Acne [Unknown]
  - Diabetes mellitus [Recovering/Resolving]
  - Nephrotic syndrome [Unknown]

NARRATIVE: CASE EVENT DATE: 2018
